FAERS Safety Report 8959964 (Version 5)
Quarter: 2013Q3

REPORT INFORMATION
  Report Type: Report from Study
  Country: US (occurrence: US)
  Receive Date: 20121211
  Receipt Date: 20130712
  Transmission Date: 20140515
  Serious: Yes (Death, Hospitalization, Other)
  Sender: FDA-Public Use
  Company Number: US-MILLENNIUM PHARMACEUTICALS, INC.-2012-08615

PATIENT
  Age: 63 Year
  Sex: Female
  Weight: 81.6 kg

DRUGS (3)
  1. VELCADE [Suspect]
     Indication: ACUTE MYELOID LEUKAEMIA
     Dosage: 1.3 MG/M2, UNK
     Route: 058
     Dates: start: 20121105, end: 20121108
  2. DECITABINE [Suspect]
     Indication: ACUTE MYELOID LEUKAEMIA
     Dosage: 20 MG/M2, UNK
     Route: 042
     Dates: start: 20121106, end: 20121115
  3. HYDROXYUREA [Suspect]
     Indication: PRODUCT USED FOR UNKNOWN INDICATION
     Dosage: 2 G, Q8HR
     Route: 065
     Dates: start: 20121029, end: 20121101

REACTIONS (7)
  - Posterior reversible encephalopathy syndrome [Fatal]
  - Hypophosphataemia [Unknown]
  - Renal failure acute [Unknown]
  - Tumour lysis syndrome [Unknown]
  - Lymphocyte count decreased [Unknown]
  - Blood creatinine increased [Unknown]
  - Hypoalbuminaemia [Unknown]
